FAERS Safety Report 4571731-8 (Version None)
Quarter: 2005Q1

REPORT INFORMATION
  Report Type: 
  Country: None (occurrence: None)
  Receive Date: 20050202
  Receipt Date: 20050202
  Transmission Date: 20050727
  Serious: Yes (Death)
  Sender: FDA-Public Use
  Company Number: None

PATIENT
  Sex: Female

DRUGS (1)
  1. ATORVASTATIN   10MG    PFIZER [Suspect]
     Dosage: 10MG  DAILY   ORAL
     Route: 048

REACTIONS (10)
  - BLOOD AMYLASE INCREASED [None]
  - CHEST PAIN [None]
  - COAGULOPATHY [None]
  - HEPATITIS ACUTE [None]
  - HYPOGLYCAEMIA [None]
  - LIPASE INCREASED [None]
  - PAIN [None]
  - RENAL FAILURE ACUTE [None]
  - RESPIRATORY FAILURE [None]
  - RHABDOMYOLYSIS [None]
